FAERS Safety Report 5959113-5 (Version None)
Quarter: 2008Q4

REPORT INFORMATION
  Report Type: 
  Country: None (occurrence: None)
  Receive Date: 20081120
  Receipt Date: 20071227
  Transmission Date: 20090506
  Serious: No
  Sender: FDA-Public Use
  Company Number: A0700565A

PATIENT
  Sex: Female

DRUGS (2)
  1. WELLBUTRIN SR [Suspect]
     Indication: DEPRESSION
     Dates: start: 20071207
  2. NO CONCURRENT MEDICATION [Concomitant]

REACTIONS (2)
  - MIDDLE INSOMNIA [None]
  - NIGHTMARE [None]
